FAERS Safety Report 10069023 (Version 2)
Quarter: 2014Q2

REPORT INFORMATION
  Report Type: Spontaneous
  Country: IT (occurrence: IT)
  Receive Date: 20140409
  Receipt Date: 20140613
  Transmission Date: 20141212
  Serious: Yes (Other)
  Sender: FDA-Public Use
  Company Number: IT-WATSON-2014-06734

PATIENT
  Age: 48 Year
  Sex: Male
  Weight: 80 kg

DRUGS (1)
  1. RISPERIDONE ACTAVIS [Suspect]
     Indication: MENTAL DISORDER
     Dosage: 2 MG, DAILY
     Route: 048

REACTIONS (1)
  - Urticaria [Recovered/Resolved]
